FAERS Safety Report 9861729 (Version 1)
Quarter: 2014Q1

REPORT INFORMATION
  Report Type: Spontaneous
  Country: US (occurrence: None)
  Receive Date: 20140131
  Receipt Date: 20140131
  Transmission Date: 20141002
  Serious: No
  Sender: FDA-Public Use
  Company Number: None

PATIENT
  Age: 78 Year
  Sex: Male
  Weight: 58 kg

DRUGS (14)
  1. PRADAXA [Suspect]
  2. MIDODRINE [Concomitant]
  3. PYRIDOXINE [Concomitant]
  4. VITAMIN B-12 [Concomitant]
  5. METHIMAZOLE [Concomitant]
  6. PANTOPRAZOLE [Concomitant]
  7. COLLAGENASE OINTMENT [Concomitant]
  8. ATENOLOL [Concomitant]
  9. RISPERIDONE [Concomitant]
  10. SERTRALINE [Concomitant]
  11. DIGOXIN [Concomitant]
  12. MIRTAZAPINE [Concomitant]
  13. QUETIAPINE [Concomitant]
  14. NYSTATIN/ZINC OXIDE OINTMENT [Concomitant]

REACTIONS (1)
  - Lower gastrointestinal haemorrhage [None]
